FAERS Safety Report 12572319 (Version 3)
Quarter: 2017Q2

REPORT INFORMATION
  Report Type: Report from Study
  Country: US (occurrence: US)
  Receive Date: 20160719
  Receipt Date: 20170614
  Transmission Date: 20170830
  Serious: Yes (Hospitalization, Other)
  Sender: FDA-Public Use
  Company Number: US-GILEAD-2016-0223259

PATIENT
  Age: 78 Year
  Sex: Female

DRUGS (3)
  1. IDELALISIB [Suspect]
     Active Substance: IDELALISIB
     Dosage: 50 MG, BID
     Route: 048
  2. IDELALISIB [Suspect]
     Active Substance: IDELALISIB
     Dosage: 100 MG, BID
     Route: 048
  3. IDELALISIB [Suspect]
     Active Substance: IDELALISIB
     Indication: CHRONIC LYMPHOCYTIC LEUKAEMIA
     Dosage: 100 MG, BID
     Route: 048
     Dates: start: 20150126

REACTIONS (11)
  - Bronchitis [Unknown]
  - Dyspnoea [Unknown]
  - Diverticulitis [Unknown]
  - Chills [Unknown]
  - Abdominal pain upper [Unknown]
  - Gastrointestinal sounds abnormal [Unknown]
  - Chronic obstructive pulmonary disease [Unknown]
  - Abdominal tenderness [Unknown]
  - Gastritis [Unknown]
  - Off label use [Recovered/Resolved]
  - Fatigue [Unknown]

NARRATIVE: CASE EVENT DATE: 2015
